FAERS Safety Report 7607096-4 (Version None)
Quarter: 2011Q3

REPORT INFORMATION
  Report Type: 
  Country: None (occurrence: None)
  Receive Date: 20110712
  Receipt Date: 20110712
  Transmission Date: 20111222
  Serious: No
  Sender: FDA-Public Use
  Company Number: None

PATIENT
  Age: 64 Year
  Sex: Male
  Weight: 72 kg

DRUGS (1)
  1. CABAZITAXEL [Suspect]
     Indication: PROSTATE CANCER
     Dosage: 46 MG ONCE IV
     Route: 042
     Dates: start: 20110506, end: 20110506

REACTIONS (7)
  - VOMITING [None]
  - PRESYNCOPE [None]
  - HYPERHIDROSIS [None]
  - FLUSHING [None]
  - INFUSION RELATED REACTION [None]
  - DYSGEUSIA [None]
  - NAUSEA [None]
